FAERS Safety Report 19710687 (Version 1)
Quarter: 2021Q3

REPORT INFORMATION
  Report Type: Spontaneous
  Country: US (occurrence: US)
  Receive Date: 20210816
  Receipt Date: 20210816
  Transmission Date: 20211014
  Serious: Yes (Hospitalization)
  Sender: FDA-Public Use
  Company Number: US-JNJFOC-20210805360

PATIENT
  Age: 31 Year
  Sex: Male
  Weight: 88 kg

DRUGS (1)
  1. PARACETAMOL [Suspect]
     Active Substance: ACETAMINOPHEN
     Indication: SUICIDE ATTEMPT
     Dosage: 55000 MG SINGLE DOSE
     Route: 048
     Dates: start: 19990324, end: 19990324

REACTIONS (13)
  - Calcium ionised decreased [Recovered/Resolved]
  - Duodenal ulcer perforation [Recovered/Resolved]
  - White blood cell count decreased [Recovered/Resolved]
  - PCO2 increased [Recovered/Resolved]
  - Blood creatinine increased [Recovered/Resolved]
  - Blood sodium decreased [Recovered/Resolved]
  - Blood chloride decreased [Recovered/Resolved]
  - Intentional overdose [Recovered/Resolved]
  - PO2 increased [Recovered/Resolved]
  - Kidney enlargement [Recovered/Resolved]
  - Acute hepatic failure [Recovered/Resolved]
  - Suicide attempt [Recovered/Resolved]
  - Atelectasis [Not Recovered/Not Resolved]

NARRATIVE: CASE EVENT DATE: 19990324
